FAERS Safety Report 4562515-5 (Version None)
Quarter: 2005Q1

REPORT INFORMATION
  Report Type: 
  Country: None (occurrence: None)
  Receive Date: 20050127
  Receipt Date: 20050113
  Transmission Date: 20050727
  Serious: Yes (Hospitalization)
  Sender: FDA-Public Use
  Company Number: US-JNJFOC-20050103879

PATIENT
  Sex: Female

DRUGS (22)
  1. INFLIXIMAB [Suspect]
     Indication: RHEUMATOID ARTHRITIS
     Route: 042
  2. ALLEGRA [Concomitant]
  3. AZATHIOPRINE [Concomitant]
  4. ESTRADIAL [Concomitant]
  5. FLONASE [Concomitant]
  6. FOLIC ACID [Concomitant]
  7. HYDROXYCHLOROQUINE SULFATE [Concomitant]
  8. PRILOSEC [Concomitant]
  9. PROZAC [Concomitant]
  10. TRIAMTERENE [Concomitant]
  11. VIOXX [Concomitant]
  12. SONATA [Concomitant]
  13. PRAVACHOL [Concomitant]
  14. DUCOLAX [Concomitant]
  15. MULTI-VITAMIN [Concomitant]
  16. MULTI-VITAMIN [Concomitant]
  17. MULTI-VITAMIN [Concomitant]
  18. MULTI-VITAMIN [Concomitant]
  19. MULTI-VITAMIN [Concomitant]
  20. MULTI-VITAMIN [Concomitant]
  21. MULTI-VITAMIN [Concomitant]
  22. MULTI-VITAMIN [Concomitant]

REACTIONS (3)
  - CAROTID ARTERY DISEASE [None]
  - CORONARY ARTERY STENOSIS [None]
  - RADIAL PULSE ABNORMAL [None]
